FAERS Safety Report 10904015 (Version 1)
Quarter: 2015Q1

REPORT INFORMATION
  Report Type: Not Available
  Country: IT (occurrence: IT)
  Receive Date: 20150311
  Receipt Date: 20150311
  Transmission Date: 20150721
  Serious: Yes (Death, Other)
  Sender: FDA-Public Use
  Company Number: IT-CELGENE-083-20785-11021445

PATIENT

DRUGS (7)
  1. THALIDOMIDE [Suspect]
     Active Substance: THALIDOMIDE
     Indication: PLASMA CELL MYELOMA
     Dosage: 50 MILLIGRAM
     Route: 048
  2. LMWH [Concomitant]
     Indication: THROMBOSIS PROPHYLAXIS
     Route: 065
  3. MELPHALAN [Suspect]
     Active Substance: MELPHALAN
     Indication: PLASMA CELL MYELOMA
     Route: 065
  4. ASA [Concomitant]
     Active Substance: ASPIRIN
     Indication: THROMBOSIS PROPHYLAXIS
     Dosage: 100 MILLIGRAM
     Route: 065
  5. PREDNISONE. [Suspect]
     Active Substance: PREDNISONE
     Indication: PLASMA CELL MYELOMA
     Route: 065
  6. BORTEZOMIB [Suspect]
     Active Substance: BORTEZOMIB
     Indication: PLASMA CELL MYELOMA
     Route: 065
  7. WARFARIN [Concomitant]
     Active Substance: WARFARIN
     Indication: THROMBOSIS PROPHYLAXIS
     Dosage: 40 MILLIGRAM
     Route: 065

REACTIONS (38)
  - Acute myocardial infarction [Fatal]
  - Infection [Fatal]
  - Anaemia [Unknown]
  - Deep vein thrombosis [Unknown]
  - Plasma cell myeloma [Unknown]
  - Pyrexia [Unknown]
  - Cardiovascular disorder [Unknown]
  - Cardiac arrest [Fatal]
  - Arterial thrombosis [Unknown]
  - Pneumonia [Unknown]
  - Constipation [Unknown]
  - Oedema peripheral [Unknown]
  - Gastrointestinal haemorrhage [Fatal]
  - Cerebrovascular accident [Unknown]
  - Neutropenia [Unknown]
  - Infection [Unknown]
  - Confusional state [Unknown]
  - Sudden death [Fatal]
  - Neuropathy peripheral [Unknown]
  - Vomiting [Unknown]
  - Nausea [Unknown]
  - Sepsis [Unknown]
  - Thrombocytopenia [Unknown]
  - Viral infection [Unknown]
  - Diarrhoea [Unknown]
  - Fatigue [Unknown]
  - Angiopathy [Fatal]
  - Cardiac failure [Unknown]
  - Epistaxis [Unknown]
  - Haemorrhage urinary tract [Fatal]
  - Arrhythmia [Unknown]
  - Febrile neutropenia [Unknown]
  - Haematotoxicity [Unknown]
  - Nervous system disorder [Unknown]
  - Gastrointestinal disorder [Unknown]
  - Death [Fatal]
  - Pulmonary embolism [Fatal]
  - Skin haemorrhage [Unknown]
